FAERS Safety Report 8061404-1 (Version None)
Quarter: 2012Q1

REPORT INFORMATION
  Report Type: 
  Country: None (occurrence: None)
  Receive Date: 20120120
  Receipt Date: 20111017
  Transmission Date: 20120608
  Serious: No
  Sender: FDA-Public Use
  Company Number: US-ALLERGAN-1113687US

PATIENT
  Age: 49 Year
  Sex: Female

DRUGS (4)
  1. XALATAN [Suspect]
     Indication: GLAUCOMA
  2. FLUORESCITE [Suspect]
     Indication: PRODUCT USED FOR UNKNOWN INDICATION
  3. RESTASIS [Suspect]
     Indication: PRODUCT USED FOR UNKNOWN INDICATION
  4. ACULAR [Suspect]
     Indication: PRODUCT USED FOR UNKNOWN INDICATION

REACTIONS (1)
  - DERMATITIS CONTACT [None]
